FAERS Safety Report 8602640 (Version 3)
Quarter: 2013Q1

REPORT INFORMATION
  Report Type: Spontaneous
  Country: FR (occurrence: FR)
  Receive Date: 20120607
  Receipt Date: 20121022
  Transmission Date: 20140127
  Serious: Yes (Life-Threatening, Hospitalization)
  Sender: FDA-Public Use
  Company Number: FR-ASTRAZENECA-2012SE36488

PATIENT
  Age: 25696 Day
  Sex: Female

DRUGS (4)
  1. ATACAND [Suspect]
     Indication: HYPERTENSION
     Route: 048
     Dates: start: 2010
  2. PLAQUENIL [Suspect]
     Indication: SJOGREN^S SYNDROME
     Route: 048
     Dates: start: 201109, end: 20120416
  3. EXTOVYL [Suspect]
     Indication: MENIERE^S DISEASE
     Route: 048
     Dates: start: 2010
  4. TANGANIL [Suspect]
     Indication: MENIERE^S DISEASE
     Route: 048
     Dates: start: 2010

REACTIONS (5)
  - Hepatocellular injury [Recovered/Resolved]
  - Rhabdomyolysis [Recovered/Resolved]
  - Polymyositis [Recovered/Resolved]
  - Respiratory failure [Recovered/Resolved]
  - Myositis [Recovered/Resolved]
